FAERS Safety Report 15405038 (Version 3)
Quarter: 2018Q4

REPORT INFORMATION
  Report Type: Report from Study
  Country: None (occurrence: CH)
  Receive Date: 20180920
  Receipt Date: 20181127
  Transmission Date: 20190204
  Serious: Yes (Other)
  Sender: FDA-Public Use
  Company Number: CH-ABBVIE-18S-151-2468461-00

PATIENT
  Sex: Male

DRUGS (4)
  1. DUODOPA [Suspect]
     Active Substance: CARBIDOPA\LEVODOPA
     Dosage: MD: 4.5ML; CD-DAY: 2.3ML/H; ED: 1.0ML,16TH THERAPY
     Route: 050
     Dates: start: 20180828, end: 20180911
  2. DUODOPA [Suspect]
     Active Substance: CARBIDOPA\LEVODOPA
     Indication: PARKINSONISM
     Dosage: MD 4.5ML; CD-DAY: 1.9ML/H; ED 1.0ML
     Route: 050
     Dates: start: 20180806, end: 20180822
  3. DUODOPA [Suspect]
     Active Substance: CARBIDOPA\LEVODOPA
     Dosage: MD 4.5ML; CD-DAY: 2.1ML/H; ED 1.0ML,16TH THERAPY
     Route: 050
     Dates: start: 20180822, end: 20180828
  4. DUODOPA [Suspect]
     Active Substance: CARBIDOPA\LEVODOPA
     Dosage: MD 4.5ML; CD-DAY 2.6ML/H; ED 1ML?16H THERAPY
     Route: 050
     Dates: start: 20180911

REACTIONS (6)
  - Fatigue [Recovered/Resolved]
  - General physical health deterioration [Recovering/Resolving]
  - Walking aid user [Recovered/Resolved]
  - Movement disorder [Recovering/Resolving]
  - Depressed level of consciousness [Recovering/Resolving]
  - Dysphonia [Recovering/Resolving]

NARRATIVE: CASE EVENT DATE: 2018
